FAERS Safety Report 21395619 (Version 1)
Quarter: 2022Q3

REPORT INFORMATION
  Report Type: Report from Study
  Country: US (occurrence: US)
  Receive Date: 20220930
  Receipt Date: 20220930
  Transmission Date: 20221027
  Serious: No
  Sender: FDA-Public Use
  Company Number: US-NOVARTISTESTPH-NVSC2022US220598

PATIENT
  Sex: Male

DRUGS (1)
  1. COSENTYX [Suspect]
     Active Substance: SECUKINUMAB
     Indication: Psoriatic arthropathy
     Dosage: 300 MG, OTHER, ONCE WEEKLY FOR 5 WEEKS, THEN ONCE EVERY 4 WEEKS
     Route: 058
     Dates: start: 20220826

REACTIONS (2)
  - Constipation [Unknown]
  - Psychotic disorder [Unknown]
